FAERS Safety Report 19125284 (Version 1)
Quarter: 2021Q2

REPORT INFORMATION
  Report Type: Spontaneous
  Country: ES (occurrence: ES)
  Receive Date: 20210413
  Receipt Date: 20210413
  Transmission Date: 20210717
  Serious: Yes (Death)
  Sender: FDA-Public Use
  Company Number: ES-SA-2021SA120339

PATIENT
  Age: 7 Year
  Sex: Male

DRUGS (1)
  1. IMIGLUCERASE [Suspect]
     Active Substance: IMIGLUCERASE
     Indication: GAUCHER^S DISEASE TYPE II
     Dosage: 60 IU/KG, QOW
     Route: 065
     Dates: start: 2015

REACTIONS (2)
  - Bronchospasm [Fatal]
  - Dysphagia [Unknown]
